FAERS Safety Report 6370131-8 (Version None)
Quarter: 2009Q3

REPORT INFORMATION
  Report Type: 
  Country: None (occurrence: None)
  Receive Date: 20090923
  Receipt Date: 20071203
  Transmission Date: 20100115
  Serious: No
  Sender: FDA-Public Use
  Company Number: US-ASTRAZENECA-2006UW21390

PATIENT
  Age: 22551 Day
  Sex: Female
  Weight: 103.4 kg

DRUGS (32)
  1. SEROQUEL [Suspect]
     Indication: DEPRESSION
     Route: 048
     Dates: start: 20020101
  2. SEROQUEL [Suspect]
     Dosage: 80 MG TO 300 MG
     Route: 048
     Dates: start: 20021208
  3. TRIAMTERENE [Concomitant]
     Route: 065
  4. SINGULAIR [Concomitant]
     Route: 048
  5. VIOXX [Concomitant]
     Route: 065
     Dates: end: 20041122
  6. ALLEGRA [Concomitant]
     Indication: COUGH
     Route: 048
  7. PAXIL [Concomitant]
     Dosage: 27.5-80 MG
     Route: 048
  8. PREMARIN [Concomitant]
     Route: 065
  9. REMERON [Concomitant]
     Dosage: 15-50 MG
     Route: 048
  10. GEMFIBROZIL [Concomitant]
     Route: 048
  11. FORMOTEROL AEROLIZER [Concomitant]
     Route: 065
  12. FLUTICASONE [Concomitant]
     Dosage: 500 - 50 MCG
     Route: 065
  13. IPRATROPIUM INHALER [Concomitant]
     Route: 065
  14. PULMICORT-100 [Concomitant]
     Dosage: 200-400 MCG
     Route: 048
  15. LIPITOR [Concomitant]
     Dosage: 10-80 MG
     Route: 048
  16. QUININE [Concomitant]
     Dosage: 216-260 MG
     Route: 048
  17. PIROXICAM [Concomitant]
     Route: 048
  18. SEREVENT [Concomitant]
     Route: 048
  19. LORAZEPAM [Concomitant]
     Route: 048
     Dates: start: 20020101
  20. DUONEB [Concomitant]
     Dosage: 2.5-0.5 MG
     Route: 048
  21. ALBUTEROL [Concomitant]
     Route: 048
  22. SPIRIVA [Concomitant]
     Route: 048
  23. LOVASTATIN [Concomitant]
     Route: 048
     Dates: start: 20070123
  24. NOVOLOG [Concomitant]
     Dosage: 15-100 UNITS
     Route: 048
  25. LOPID [Concomitant]
     Route: 048
     Dates: start: 20041124
  26. CYCLOBENZAPRINE [Concomitant]
     Route: 048
  27. OMEPRAZOLE [Concomitant]
     Dosage: 20-40 MG
     Route: 048
  28. FUROSEMIDE [Concomitant]
     Dosage: 20-80 MG
     Route: 048
  29. FUROSEMIDE [Concomitant]
     Dosage: 20 - 40 MG
     Route: 048
  30. ADVIL [Concomitant]
     Route: 065
  31. SOLU-MEDROL [Concomitant]
     Dosage: 60-125 MG
  32. ATROVENT [Concomitant]
     Dosage: 15 - 60 GM
     Route: 048

REACTIONS (3)
  - DIABETES MELLITUS [None]
  - INSULIN-REQUIRING TYPE 2 DIABETES MELLITUS [None]
  - TYPE 2 DIABETES MELLITUS [None]
